FAERS Safety Report 10067383 (Version 4)
Quarter: 2014Q2

REPORT INFORMATION
  Report Type: Spontaneous
  Country: US (occurrence: US)
  Receive Date: 20140409
  Receipt Date: 20140623
  Transmission Date: 20141212
  Serious: Yes (Other)
  Sender: FDA-Public Use
  Company Number: US-JNJFOC-20140318212

PATIENT
  Sex: Male

DRUGS (3)
  1. DURAGESIC [Suspect]
     Indication: PAIN
     Route: 062
     Dates: start: 2010
  2. DURAGESIC [Suspect]
     Indication: PAIN
     Route: 062
     Dates: start: 20140331
  3. DURAGESIC [Suspect]
     Indication: PAIN
     Route: 062
     Dates: end: 2012

REACTIONS (9)
  - Neck surgery [Unknown]
  - Joint crepitation [Unknown]
  - Weight decreased [Not Recovered/Not Resolved]
  - Dermatitis contact [Recovered/Resolved]
  - Wrong technique in drug usage process [Unknown]
  - Wrong technique in drug usage process [Unknown]
  - Wrong technique in drug usage process [Unknown]
  - Product quality issue [Unknown]
  - Product quality issue [Unknown]
